FAERS Safety Report 26134310 (Version 1)
Quarter: 2025Q4

REPORT INFORMATION
  Report Type: Spontaneous
  Country: JP (occurrence: JP)
  Receive Date: 20251209
  Receipt Date: 20251209
  Transmission Date: 20260118
  Serious: Yes (Other)
  Sender: SOMERSET THERAPEUTICS, LLC
  Company Number: JP-MIT-25-75-JP-2025-SOM-LIT-00464

PATIENT
  Age: 40 Year
  Sex: Female

DRUGS (2)
  1. PEMETREXED DISODIUM [Suspect]
     Active Substance: PEMETREXED DISODIUM
     Indication: Adenoid cystic carcinoma
     Dosage: ON DAY 1 OF A 21-DAY CYCLE
     Route: 065
  2. CARBOPLATIN [Concomitant]
     Active Substance: CARBOPLATIN
     Indication: Adenoid cystic carcinoma
     Route: 065

REACTIONS (3)
  - Malaise [Unknown]
  - Neuralgia [Unknown]
  - Product use in unapproved indication [Unknown]
